FAERS Safety Report 21799269 (Version 1)
Quarter: 2022Q4

REPORT INFORMATION
  Report Type: Spontaneous
  Country: US (occurrence: None)
  Receive Date: 20221230
  Receipt Date: 20221230
  Transmission Date: 20230113
  Serious: No
  Sender: FDA-Public Use
  Company Number: None

PATIENT
  Age: 83 Year
  Sex: Male
  Weight: 82.1 kg

DRUGS (11)
  1. ABIRATERONE [Suspect]
     Active Substance: ABIRATERONE
     Indication: Prostate cancer
     Dosage: FREQUENCY : DAILY;?
     Route: 048
  2. ASPIRIN [Concomitant]
     Active Substance: ASPIRIN
  3. ATORVASTATIN [Concomitant]
     Active Substance: ATORVASTATIN
  4. CLOPIDOGREL [Concomitant]
     Active Substance: CLOPIDOGREL BISULFATE
  5. FAMOTIDINE [Concomitant]
     Active Substance: FAMOTIDINE
  6. ONDANSETRON [Concomitant]
     Active Substance: ONDANSETRON
  7. PHENAZOPYRIDINE [Concomitant]
     Active Substance: PHENAZOPYRIDINE
  8. MINERALS\VITAMINS [Concomitant]
     Active Substance: MINERALS\VITAMINS
  9. ROCKLATAN [Concomitant]
     Active Substance: LATANOPROST\NETARSUDIL MESYLATE
  10. TAMSULOSIN [Concomitant]
     Active Substance: TAMSULOSIN
  11. VALSARTAN [Concomitant]
     Active Substance: VALSARTAN

REACTIONS (1)
  - Hospice care [None]
